FAERS Safety Report 20001900 (Version 1)
Quarter: 2021Q4

REPORT INFORMATION
  Report Type: Spontaneous
  Country: JP (occurrence: JP)
  Receive Date: 20211027
  Receipt Date: 20211027
  Transmission Date: 20220303
  Serious: Yes (Hospitalization, Other)
  Sender: FDA-Public Use
  Company Number: JP-GLAXOSMITHKLINE-JP2021JPN219482

PATIENT
  Age: 69 Year
  Sex: Female
  Weight: 54.6 kg

DRUGS (7)
  1. VALTREX [Suspect]
     Active Substance: VALACYCLOVIR HYDROCHLORIDE
     Indication: Herpes zoster
     Dosage: 1000 MG, TID, AFTER EVERY MEAL
     Route: 048
     Dates: start: 20200807, end: 20200809
  2. LOXOPROFEN [Suspect]
     Active Substance: LOXOPROFEN
     Indication: Herpes zoster
     Dosage: 60 MG, TID, AFTER EVERY MEAL
     Route: 048
     Dates: start: 20200806, end: 20200809
  3. AMENAMEVIR [Concomitant]
     Active Substance: AMENAMEVIR
     Dosage: UNK
     Dates: start: 20210805, end: 20210809
  4. VIDARABINE [Concomitant]
     Active Substance: VIDARABINE
     Dosage: UNK
     Dates: start: 20200805
  5. TOARASET COMBINATION TABLETS [Concomitant]
     Dosage: 1 DF, QID, AFTER EVERY MEAL AND BEFORE BED
  6. LANSOPRAZOLE [Concomitant]
     Active Substance: LANSOPRAZOLE
     Dosage: 1 DF, QD, AFTER SUPPER
  7. VIDARABINE OINTMENT [Concomitant]
     Dosage: 20 G
     Dates: start: 20210807, end: 20210809

REACTIONS (8)
  - Acute kidney injury [Recovering/Resolving]
  - Renal impairment [Recovering/Resolving]
  - Hallucination, auditory [Unknown]
  - Dementia [Unknown]
  - Vomiting [Unknown]
  - Diplopia [Unknown]
  - Scintillating scotoma [Unknown]
  - Disorganised speech [Unknown]

NARRATIVE: CASE EVENT DATE: 20200808
